FAERS Safety Report 9471840 (Version 2)
Quarter: 2013Q3

REPORT INFORMATION
  Report Type: Spontaneous
  Country: GB (occurrence: GB)
  Receive Date: 20130822
  Receipt Date: 20130822
  Transmission Date: 20140515
  Serious: Yes (Other)
  Sender: FDA-Public Use
  Company Number: GB-ROCHE-1252035

PATIENT
  Age: 56 Year
  Sex: Female
  Weight: 62 kg

DRUGS (4)
  1. ROACTEMRA [Suspect]
     Indication: RHEUMATOID ARTHRITIS
     Route: 042
     Dates: start: 20130613, end: 20130711
  2. MELOXICAM [Concomitant]
     Indication: RHEUMATOID ARTHRITIS
     Route: 048
  3. AMLODIPIN [Concomitant]
     Indication: HYPERTENSION
     Route: 048
  4. OMEPRAZOL [Concomitant]
     Route: 048

REACTIONS (2)
  - Migraine [Recovered/Resolved]
  - Visual impairment [Unknown]
